FAERS Safety Report 19595304 (Version 1)
Quarter: 2021Q3

REPORT INFORMATION
  Report Type: Spontaneous
  Country: FR (occurrence: FR)
  Receive Date: 20210722
  Receipt Date: 20210722
  Transmission Date: 20211014
  Serious: Yes (Life-Threatening)
  Sender: FDA-Public Use
  Company Number: FR-TEVA-2021-FR-1934522

PATIENT
  Age: 84 Year
  Sex: Female
  Weight: 90 kg

DRUGS (8)
  1. TOVIAZ [Suspect]
     Active Substance: FESOTERODINE FUMARATE
     Indication: PRODUCT USED FOR UNKNOWN INDICATION
     Dosage: 1DOSAGEFORM
     Route: 048
     Dates: end: 20210519
  2. BACTRIM [Suspect]
     Active Substance: SULFAMETHOXAZOLE\TRIMETHOPRIM
     Indication: OSTEITIS
     Dosage: 2DOSAGEFORM
     Route: 048
     Dates: start: 202105, end: 20210519
  3. APIXABAN [Suspect]
     Active Substance: APIXABAN
     Indication: ATRIAL FIBRILLATION
     Dosage: 10MILLIGRAM
     Route: 048
     Dates: end: 20210519
  4. AMLODIPINE [Suspect]
     Active Substance: AMLODIPINE BESYLATE
     Indication: HYPERTENSION
     Dosage: 5MILLIGRAM
     Route: 048
     Dates: end: 20210519
  5. CHLORHYDRATE DE CLOMIPRAMINE [Suspect]
     Active Substance: CLOMIPRAMINE HYDROCHLORIDE
     Indication: PSYCHOTIC DISORDER
     Dosage: 3.7MILLIGRAM
     Route: 048
     Dates: end: 20210519
  6. PERINDOPRIL [Suspect]
     Active Substance: PERINDOPRIL
     Indication: HYPERTENSION
     Dosage: 4MILLIGRAM
     Route: 048
     Dates: end: 20210519
  7. OXAZEPAM. [Suspect]
     Active Substance: OXAZEPAM
     Indication: PSYCHOTIC DISORDER
     Dosage: 20MILLIGRAM
     Route: 048
     Dates: end: 20210519
  8. ARIPIPRAZOLE. [Suspect]
     Active Substance: ARIPIPRAZOLE
     Indication: PSYCHOTIC DISORDER
     Dosage: 10MILLIGRAM
     Route: 048
     Dates: end: 20210519

REACTIONS (2)
  - Encephalopathy [Recovered/Resolved]
  - Anaphylactic shock [Recovered/Resolved]

NARRATIVE: CASE EVENT DATE: 20210619
